FAERS Safety Report 24210002 (Version 1)
Quarter: 2024Q3

REPORT INFORMATION
  Report Type: Spontaneous
  Country: CN (occurrence: CN)
  Receive Date: 20240814
  Receipt Date: 20240814
  Transmission Date: 20241017
  Serious: Yes (Hospitalization, Other)
  Sender: Haleon PLC
  Company Number: CN-HALEON-2191421

PATIENT
  Age: 37 Year
  Sex: Male

DRUGS (2)
  1. DICLOFENAC SODIUM [Suspect]
     Active Substance: DICLOFENAC\DICLOFENAC SODIUM
     Indication: Toothache
     Dosage: FORMULATION: SUSTAINED RELEASE TABLETS
     Route: 048
     Dates: start: 20240603, end: 20240604
  2. METRONIDAZOLE [Suspect]
     Active Substance: METRONIDAZOLE
     Indication: Toothache
     Dosage: TIME INTERVAL: 0.33333333 DAYS: FORMULATION: MODIFIED-RELEASE BUCCAL TABLETS
     Route: 049
     Dates: start: 20240603, end: 20240604

REACTIONS (5)
  - Erythema multiforme [Recovering/Resolving]
  - Rash [Recovering/Resolving]
  - Oropharyngeal discomfort [Recovering/Resolving]
  - Pruritus [Recovering/Resolving]
  - Rash maculo-papular [Recovering/Resolving]

NARRATIVE: CASE EVENT DATE: 20240604
